FAERS Safety Report 9292168 (Version 1)
Quarter: 2013Q2

REPORT INFORMATION
  Report Type: Spontaneous
  Country: US (occurrence: US)
  Receive Date: 20130516
  Receipt Date: 20130516
  Transmission Date: 20140414
  Serious: Yes (Hospitalization)
  Sender: FDA-Public Use
  Company Number: US-JNJFOC-20130505024

PATIENT
  Sex: 0

DRUGS (3)
  1. PREZISTA [Suspect]
     Indication: HIV INFECTION
     Route: 065
     Dates: start: 2013, end: 2013
  2. TRUVADA [Suspect]
     Indication: HIV INFECTION
     Route: 065
     Dates: end: 2013
  3. NORVIR [Suspect]
     Indication: HIV INFECTION
     Route: 065

REACTIONS (2)
  - Nephropathy [Recovered/Resolved]
  - Malaise [Recovered/Resolved]
